FAERS Safety Report 21263658 (Version 1)
Quarter: 2022Q3

REPORT INFORMATION
  Report Type: Spontaneous
  Country: US (occurrence: US)
  Receive Date: 20220829
  Receipt Date: 20220829
  Transmission Date: 20221026
  Serious: No
  Sender: FDA-Public Use
  Company Number: US-BSC-2021000110

PATIENT
  Age: 56 Year
  Sex: Female

DRUGS (1)
  1. VARITHENA [Suspect]
     Active Substance: POLIDOCANOL
     Indication: Varicose vein
     Dosage: 10 CC?S ADMINISTERED
     Dates: start: 20210729, end: 20210729

REACTIONS (1)
  - Deep vein thrombosis [Unknown]
